FAERS Safety Report 9264410 (Version 1)
Quarter: 2013Q2

REPORT INFORMATION
  Report Type: Spontaneous
  Country: JP (occurrence: JP)
  Receive Date: 20130430
  Receipt Date: 20130430
  Transmission Date: 20140414
  Serious: Yes (Hospitalization)
  Sender: FDA-Public Use
  Company Number: JP-B.I. PHARMACEUTICALS,INC./RIDGEFIELD-2013-BI-11288NB

PATIENT
  Age: 81 Year
  Sex: Male

DRUGS (8)
  1. PRADAXA [Suspect]
     Indication: ATRIAL FIBRILLATION
     Dosage: 220 MG
     Route: 048
     Dates: start: 20121101, end: 20130423
  2. PREDONINE [Concomitant]
     Dosage: 2.5 MG
     Route: 065
  3. GASLON N [Concomitant]
     Dosage: 4 MG
     Route: 065
  4. TAKEPRON [Concomitant]
     Dosage: 15 MG
     Route: 065
  5. AMLODIN OD [Concomitant]
     Dosage: 5 MG
     Route: 065
  6. MOVER [Concomitant]
     Dosage: 200 MG
     Route: 065
  7. BIOFERMIN R [Concomitant]
     Route: 065
  8. MUCOSOLVAN [Concomitant]
     Route: 065

REACTIONS (3)
  - Pneumonia [Unknown]
  - Dysphagia [Unknown]
  - Incorrect route of drug administration [Unknown]
